FAERS Safety Report 6138667-2 (Version None)
Quarter: 2009Q1

REPORT INFORMATION
  Report Type: 
  Country: None (occurrence: None)
  Receive Date: 20090331
  Receipt Date: 20090325
  Transmission Date: 20090719
  Serious: Yes (Hospitalization)
  Sender: FDA-Public Use
  Company Number: PHHY2008CA26280

PATIENT
  Sex: Male

DRUGS (1)
  1. SANDOSTATIN LAR [Suspect]
     Indication: NEUROENDOCRINE TUMOUR
     Dosage: 20 MG, QMO
     Route: 030
     Dates: start: 20080226

REACTIONS (8)
  - ARTHRALGIA [None]
  - FACE OEDEMA [None]
  - HEART RATE INCREASED [None]
  - HYPOAESTHESIA [None]
  - LIVER DISORDER [None]
  - OEDEMA PERIPHERAL [None]
  - SERUM SICKNESS [None]
  - STREPTOCOCCAL INFECTION [None]
